FAERS Safety Report 14362941 (Version 1)
Quarter: 2018Q1

REPORT INFORMATION
  Report Type: Spontaneous
  Country: US (occurrence: US)
  Receive Date: 20180105
  Receipt Date: 20180105
  Transmission Date: 20180509
  Serious: Yes (Life-Threatening)
  Sender: FDA-Public Use
  Company Number: None

PATIENT
  Age: 36 Year
  Sex: Female
  Weight: 65.8 kg

DRUGS (2)
  1. PRIVIGEN [Suspect]
     Active Substance: HUMAN IMMUNOGLOBULIN G
     Indication: SYSTEMIC LUPUS ERYTHEMATOSUS
     Dosage: ?          OTHER FREQUENCY:X 2 DAYS EVERY MO;?
     Route: 042
  2. PRIVIGEN [Suspect]
     Active Substance: HUMAN IMMUNOGLOBULIN G
     Indication: POLYMYOSITIS
     Dosage: ?          OTHER FREQUENCY:X 2 DAYS EVERY MO;?
     Route: 042

REACTIONS (3)
  - Dyspnoea [None]
  - Urticaria [None]
  - Rash [None]

NARRATIVE: CASE EVENT DATE: 20180102
